FAERS Safety Report 10065483 (Version 15)
Quarter: 2016Q3

REPORT INFORMATION
  Report Type: Report from Study
  Country: CA (occurrence: CA)
  Receive Date: 20140408
  Receipt Date: 20160818
  Transmission Date: 20161108
  Serious: Yes (Hospitalization)
  Sender: FDA-Public Use
  Company Number: PHHY2013CA013084

PATIENT
  Age: 48 Year
  Sex: Male

DRUGS (5)
  1. SANDOSTATIN LAR DEPOT [Suspect]
     Active Substance: OCTREOTIDE ACETATE
     Indication: PAIN
     Dosage: 20 MG, QMO
     Route: 030
  2. SANDOSTATIN [Suspect]
     Active Substance: OCTREOTIDE ACETATE
     Indication: PAIN
  3. SANDOSTATIN LAR DEPOT [Suspect]
     Active Substance: OCTREOTIDE ACETATE
     Dosage: 20 MG, QMO (EVERY 4 WEEKS), (ONCE A MONTH)
     Route: 030
  4. SANDOSTATIN LAR DEPOT [Suspect]
     Active Substance: OCTREOTIDE ACETATE
     Indication: CROHN^S DISEASE
     Dosage: 10 MG, QMO
     Route: 030
     Dates: start: 20121211
  5. SANDOSTATIN [Suspect]
     Active Substance: OCTREOTIDE ACETATE
     Indication: CROHN^S DISEASE
     Dosage: UNK UNK, TID
     Route: 058
     Dates: start: 20121115, end: 201212

REACTIONS (22)
  - Malaise [Unknown]
  - Constipation [Unknown]
  - Fatigue [Not Recovered/Not Resolved]
  - Abdominal distension [Unknown]
  - Nausea [Unknown]
  - Fatigue [Recovered/Resolved]
  - Herpes virus infection [Unknown]
  - Blood iron decreased [Unknown]
  - Myalgia [Unknown]
  - Pyrexia [Unknown]
  - Heart rate increased [Unknown]
  - Cholelithiasis [Unknown]
  - Needle issue [Unknown]
  - Pain in extremity [Unknown]
  - Blood pressure increased [Unknown]
  - Body temperature decreased [Unknown]
  - Abdominal pain [Recovered/Resolved]
  - Product use issue [Unknown]
  - Blood test abnormal [Unknown]
  - Influenza [Unknown]
  - Arthralgia [Unknown]
  - Product quality issue [Unknown]

NARRATIVE: CASE EVENT DATE: 201308
